FAERS Safety Report 21702050 (Version 1)
Quarter: 2022Q4

REPORT INFORMATION
  Report Type: Other
  Country: US (occurrence: None)
  Receive Date: 20221208
  Receipt Date: 20221208
  Transmission Date: 20230113
  Serious: Yes (Death)
  Sender: FDA-Public Use
  Company Number: US-ROCHE-2761133

PATIENT
  Age: 48 Year
  Sex: Male

DRUGS (1)
  1. XELODA [Suspect]
     Active Substance: CAPECITABINE
     Indication: Tongue neoplasm malignant stage unspecified
     Dosage: TAKE 4 TABLET TWICE DAILY
     Route: 048

REACTIONS (2)
  - Off label use [Unknown]
  - Death [Fatal]
